FAERS Safety Report 6725292-5 (Version None)
Quarter: 2010Q2

REPORT INFORMATION
  Report Type: 
  Country: None (occurrence: None)
  Receive Date: 20100513
  Receipt Date: 20100513
  Transmission Date: 20101027
  Serious: Yes (Hospitalization)
  Sender: FDA-Public Use
  Company Number: None

PATIENT
  Sex: Female
  Weight: 52.1637 kg

DRUGS (2)
  1. ACYCLOVIR [Suspect]
     Indication: EYE INFECTION
     Dosage: 2 TEASPOONFUL 1-A DAY FOR EYES 29 MARCH
  2. AZASITE [Suspect]
     Dosage: ONE DROP 1 A DAY

REACTIONS (6)
  - BLISTER [None]
  - ERYTHEMA [None]
  - FEELING ABNORMAL [None]
  - MALAISE [None]
  - OEDEMA PERIPHERAL [None]
  - PAIN [None]
